FAERS Safety Report 4416492-8 (Version None)
Quarter: 2004Q2

REPORT INFORMATION
  Report Type: 
  Country: None (occurrence: None)
  Receive Date: 20040630
  Receipt Date: 20030523
  Transmission Date: 20050107
  Serious: Yes (Other)
  Sender: FDA-Public Use
  Company Number: SUS1-2003-00042

PATIENT
  Sex: Female

DRUGS (1)
  1. PENTASA [Suspect]

REACTIONS (1)
  - ERYTHEMA NODOSUM [None]
